FAERS Safety Report 5567709-8 (Version None)
Quarter: 2007Q4

REPORT INFORMATION
  Report Type: 
  Country: None (occurrence: None)
  Receive Date: 20071219
  Receipt Date: 20071210
  Transmission Date: 20080405
  Serious: Yes (Other)
  Sender: FDA-Public Use
  Company Number: US-PFIZER INC-2007105451

PATIENT
  Sex: Male
  Weight: 102.27 kg

DRUGS (2)
  1. CHANTIX [Suspect]
     Indication: SMOKING CESSATION THERAPY
     Dosage: TEXT:1 MG BID EVERY DAY TDD:2 MG
     Dates: start: 20070801, end: 20071207
  2. ALCOHOL [Interacting]
     Indication: ALCOHOL USE

REACTIONS (15)
  - ABNORMAL DREAMS [None]
  - AGITATION [None]
  - CONSTIPATION [None]
  - COORDINATION ABNORMAL [None]
  - DRUG INTERACTION [None]
  - LIMB DISCOMFORT [None]
  - MUSCLE SPASMS [None]
  - MUSCULOSKELETAL STIFFNESS [None]
  - NAUSEA [None]
  - NIGHTMARE [None]
  - PSYCHOTIC DISORDER [None]
  - SELF INJURIOUS BEHAVIOUR [None]
  - SLEEP DISORDER [None]
  - SUICIDAL IDEATION [None]
  - THINKING ABNORMAL [None]
